FAERS Safety Report 7429854-1 (Version None)
Quarter: 2011Q2

REPORT INFORMATION
  Report Type: 
  Country: None (occurrence: None)
  Receive Date: 20110421
  Receipt Date: 20110418
  Transmission Date: 20111010
  Serious: Yes (Death, Other)
  Sender: FDA-Public Use
  Company Number: US-AMGEN-USASP2011014246

PATIENT
  Age: 35 Year
  Sex: Male

DRUGS (3)
  1. IVIGLOB-EX [Concomitant]
  2. ANTIFUNGAL                         /00101201/ [Concomitant]
  3. NPLATE [Suspect]
     Indication: IDIOPATHIC THROMBOCYTOPENIC PURPURA
     Dosage: 3 A?G/KG, UNK
     Dates: start: 20110201, end: 20110221

REACTIONS (5)
  - GASTROINTESTINAL HAEMORRHAGE [None]
  - CHRONIC HEPATIC FAILURE [None]
  - SEPTIC SHOCK [None]
  - PNEUMONIA FUNGAL [None]
  - DRUG INEFFECTIVE [None]
